FAERS Safety Report 8508881-7 (Version None)
Quarter: 2012Q3

REPORT INFORMATION
  Report Type: 
  Country: None (occurrence: None)
  Receive Date: 20120713
  Receipt Date: 20120705
  Transmission Date: 20120928
  Serious: Yes (Hospitalization)
  Sender: FDA-Public Use
  Company Number: JP-009507513-1207JPN000059

PATIENT

DRUGS (3)
  1. INTERFERON BETA NOS [Suspect]
     Dosage: 6 MILLION IU, BIW
     Route: 041
     Dates: start: 20110317, end: 20110502
  2. REBETOL [Suspect]
     Indication: HEPATITIS C
     Dosage: 200 MG IN THE MORNING AND 400 MG IN THE EVENING
     Route: 048
     Dates: start: 20110302, end: 20110506
  3. INTERFERON BETA NOS [Suspect]
     Indication: HEPATITIS C
     Dosage: 3 MILLION IU, TIW
     Route: 041
     Dates: start: 20110302, end: 20110314

REACTIONS (2)
  - PYREXIA [None]
  - HEPATIC NEOPLASM MALIGNANT [None]
